FAERS Safety Report 8928667 (Version 1)
Quarter: 2012Q4

REPORT INFORMATION
  Report Type: 
  Country: ES (occurrence: ES)
  Receive Date: 20121127
  Receipt Date: 20121127
  Transmission Date: 20130627
  Serious: Yes (Death)
  Sender: FDA-Public Use
  Company Number: ES-BAXTER-2012BAX025198

PATIENT

DRUGS (5)
  1. GENOXAL [Suspect]
     Indication: ACUTE LYMPHOBLASTIC LEUKAEMIA
     Dosage: DAYS 15-17
     Route: 042
  2. DEXAMETHASONE [Suspect]
     Indication: ACUTE LYMPHOBLASTIC LEUKAEMIA
     Dosage: DAYS 1,2,8-11
     Route: 042
  3. VINCRISTINE [Suspect]
     Indication: ACUTE LYMPHOBLASTIC LEUKAEMIA
     Dosage: DAYS 1 AND 8
     Route: 042
  4. IDARUBICIN [Suspect]
     Indication: ACUTE LYMPHOBLASTIC LEUKAEMIA
     Dosage: DAYS 1,2,8,9
     Route: 042
  5. CYTARABINE [Suspect]
     Indication: ACUTE LYMPHOBLASTIC LEUKAEMIA
     Dosage: DAYS 16-19, 23-26
     Route: 042

REACTIONS (1)
  - Death [Fatal]
